FAERS Safety Report 5224892-1 (Version None)
Quarter: 2007Q1

REPORT INFORMATION
  Report Type: 
  Country: None (occurrence: None)
  Receive Date: 20070131
  Receipt Date: 20070118
  Transmission Date: 20070707
  Serious: Yes (Other)
  Sender: FDA-Public Use
  Company Number: PHBS2007BE01369

PATIENT
  Age: 79 Year
  Sex: Male
  Weight: 52 kg

DRUGS (7)
  1. ZOMETA [Suspect]
     Indication: METASTASES TO BONE
     Dosage: 4 MG, MONTHLY
     Route: 042
     Dates: start: 20031125, end: 20050830
  2. LUCRIN [Concomitant]
     Dosage: MONTHLY
     Route: 065
  3. CASODEX [Concomitant]
     Dosage: UNK, QD
     Route: 065
  4. MEDROL [Concomitant]
     Dosage: 8 MG/D
     Route: 065
  5. SERETIDE [Concomitant]
     Route: 065
  6. FUROSEMIDE [Concomitant]
     Dosage: 1 DF/2 DAYS
     Route: 065
  7. SPIRIVA [Concomitant]
     Route: 065

REACTIONS (1)
  - OSTEONECROSIS [None]
